FAERS Safety Report 18444267 (Version 1)
Quarter: 2020Q4

REPORT INFORMATION
  Report Type: Spontaneous
  Country: US (occurrence: US)
  Receive Date: 20201029
  Receipt Date: 20201029
  Transmission Date: 20210114
  Serious: No
  Sender: FDA-Public Use
  Company Number: None

PATIENT
  Sex: Female

DRUGS (2)
  1. MENOPUR [Suspect]
     Active Substance: FOLLITROPIN\LUTEINIZING HORMONE
     Indication: INFERTILITY FEMALE
     Dosage: ?          OTHER DOSE:75 TO 300 IU;?
     Route: 058
     Dates: start: 20200902
  2. OVIDREL [Suspect]
     Active Substance: CHORIOGONADOTROPIN ALFA
     Indication: INFERTILITY FEMALE
     Dosage: ?          OTHER DOSE:250 TO 500 MCG;OTHER FREQUENCY:ONE DOSE AS DIRECT;?
     Route: 058
     Dates: start: 20200902

REACTIONS (6)
  - Musculoskeletal chest pain [None]
  - Menstrual disorder [None]
  - Muscle spasms [None]
  - Headache [None]
  - Muscular weakness [None]
  - Pain [None]
